FAERS Safety Report 14381293 (Version 3)
Quarter: 2018Q1

REPORT INFORMATION
  Report Type: Report from Study
  Country: BE (occurrence: BE)
  Receive Date: 20180112
  Receipt Date: 20180202
  Transmission Date: 20180509
  Serious: Yes (Life-Threatening, Hospitalization, Other)
  Sender: FDA-Public Use
  Company Number: PHHY2018BE002105

PATIENT
  Age: 25 Year
  Sex: Male
  Weight: 62.1 kg

DRUGS (4)
  1. MEDROL [Concomitant]
     Active Substance: METHYLPREDNISOLONE
     Indication: PRODUCT USED FOR UNKNOWN INDICATION
     Dosage: 8 MG/D
     Route: 065
  2. ILARIS [Suspect]
     Active Substance: CANAKINUMAB
     Dosage: UNK
     Route: 065
     Dates: start: 20171102, end: 20171102
  3. ILARIS [Suspect]
     Active Substance: CANAKINUMAB
     Dosage: 250 MG, EVERY 14 WEEKS
     Route: 058
     Dates: start: 201209
  4. ILARIS [Suspect]
     Active Substance: CANAKINUMAB
     Indication: STILL^S DISEASE
     Dosage: 150 MG, UNK
     Route: 058

REACTIONS (7)
  - Splenomegaly [Recovering/Resolving]
  - Viral infection [Recovering/Resolving]
  - Pyrexia [Recovering/Resolving]
  - Hepatomegaly [Unknown]
  - Gastrointestinal infection [Recovering/Resolving]
  - Histiocytosis haematophagic [Not Recovered/Not Resolved]
  - Lymphadenopathy [Unknown]

NARRATIVE: CASE EVENT DATE: 20171125
